FAERS Safety Report 4449084-5 (Version None)
Quarter: 2004Q3

REPORT INFORMATION
  Report Type: 
  Country: None (occurrence: None)
  Receive Date: 20040909
  Receipt Date: 20040819
  Transmission Date: 20050211
  Serious: Yes (Other)
  Sender: FDA-Public Use
  Company Number: USA040876096

PATIENT
  Age: 58 Year
  Sex: Female
  Weight: 73 kg

DRUGS (11)
  1. FORTEO [Suspect]
     Indication: OSTEOPOROSIS
     Dosage: 20 UG/1 DAY
     Dates: start: 20040702
  2. DIGOXIN [Concomitant]
  3. NEXIUM [Concomitant]
  4. COREG [Concomitant]
  5. FUROSEMIDE [Concomitant]
  6. LEVOXYL [Concomitant]
  7. CLONAZEPAM [Concomitant]
  8. PRAVACHOL [Concomitant]
  9. POTASSIUM [Concomitant]
  10. CALCIUM WITH VITAMIN D [Concomitant]
  11. ASPIRIN [Concomitant]

REACTIONS (10)
  - ASTHENIA [None]
  - DEPRESSED LEVEL OF CONSCIOUSNESS [None]
  - DIFFICULTY IN WALKING [None]
  - DIZZINESS [None]
  - EAR CONGESTION [None]
  - FATIGUE [None]
  - HYPOTENSION [None]
  - LETHARGY [None]
  - NERVOUSNESS [None]
  - PHARMACEUTICAL PRODUCT COMPLAINT [None]
